FAERS Safety Report 6201456 (Version 5)
Quarter: 2019Q2

REPORT INFORMATION
  Report Type: Spontaneous
  Country: FR (occurrence: FR)
  Receive Date: 20061222
  Receipt Date: 20190411
  Transmission Date: 20190711
  Serious: Yes (Hospitalization)
  Sender: FDA-Public Use
  Company Number: FR-ELI_LILLY_AND_COMPANY-FR200612002626

PATIENT
  Age: 79 Year
  Sex: Male
  Weight: 68 kg

DRUGS (12)
  1. OGAST [Interacting]
     Active Substance: LANSOPRAZOLE
     Indication: PRODUCT USED FOR UNKNOWN INDICATION
     Dosage: 30 MG, DAILY (1/D)
     Route: 048
  2. KETEK [Interacting]
     Active Substance: TELITHROMYCIN
     Indication: BRONCHITIS
     Dosage: UNK UNK, UNKNOWN
     Route: 048
  3. CLARITHROMYCIN. [Interacting]
     Active Substance: CLARITHROMYCIN
     Indication: PRODUCT USED FOR UNKNOWN INDICATION
     Dosage: UNK, UNKNOWN
     Route: 048
  4. PENTOXIFYLLINE. [Interacting]
     Active Substance: PENTOXIFYLLINE
     Indication: PRODUCT USED FOR UNKNOWN INDICATION
     Dosage: 15 MG, DAILY
     Route: 048
  5. SOLU-MEDROL [Concomitant]
     Active Substance: METHYLPREDNISOLONE SODIUM SUCCINATE
     Indication: BRONCHITIS
     Dosage: UNK, UNKNOWN
     Route: 048
  6. PROZAC [Suspect]
     Active Substance: FLUOXETINE HYDROCHLORIDE
     Indication: PRODUCT USED FOR UNKNOWN INDICATION
     Dosage: 20 MG, DAILY (1/D)
     Route: 048
     Dates: start: 200608, end: 200608
  7. FLUINDIONE [Interacting]
     Active Substance: FLUINDIONE
     Indication: ATRIAL FIBRILLATION
  8. KETEK [Interacting]
     Active Substance: TELITHROMYCIN
     Indication: HAEMOPTYSIS
  9. DUOVENT [Concomitant]
     Active Substance: FENOTEROL HYDROBROMIDE
     Indication: BRONCHITIS
     Dosage: UNK, UNKNOWN (VIA RESPIRATORY)
     Route: 050
  10. FLUINDIONE [Interacting]
     Active Substance: FLUINDIONE
     Indication: TACHYARRHYTHMIA
     Dosage: 15 MG, DAILY (1/D)
     Route: 048
  11. BUDESONIDE. [Concomitant]
     Active Substance: BUDESONIDE
     Indication: BRONCHITIS
     Dosage: UNK, UNKNOWN (RESPIRATORY)
     Route: 050
  12. BRONCHATHIOL [Concomitant]
     Indication: BRONCHITIS
     Dosage: UNK, UNKNOWN
     Route: 065

REACTIONS (6)
  - Prothrombin level decreased [Recovered/Resolved]
  - Drug interaction [Recovered/Resolved]
  - Bronchitis [Recovered/Resolved]
  - Haemoptysis [Recovered/Resolved]
  - International normalised ratio increased [Recovered/Resolved]
  - Prothrombin level decreased [Recovered/Resolved]

NARRATIVE: CASE EVENT DATE: 20060827
